FAERS Safety Report 14726987 (Version 2)
Quarter: 2021Q4

REPORT INFORMATION
  Report Type: Report from Study
  Country: FR (occurrence: FR)
  Receive Date: 20180406
  Receipt Date: 20211020
  Transmission Date: 20220303
  Serious: Yes (Other)
  Sender: FDA-Public Use
  Company Number: FR-SHIRE-FR201805542

PATIENT
  Sex: Male

DRUGS (17)
  1. METHOTREXATE [Suspect]
     Active Substance: METHOTREXATE
     Indication: Acute lymphocytic leukaemia
     Dosage: 10 MG, UNK
     Route: 037
     Dates: start: 20170106, end: 20170203
  2. CYTARABINE [Suspect]
     Active Substance: CYTARABINE
     Indication: Acute lymphocytic leukaemia
     Dosage: 25 MG, UNK
     Route: 037
     Dates: start: 20170106, end: 20170203
  3. CYTARABINE [Suspect]
     Active Substance: CYTARABINE
     Dosage: 40.5 MG, UNK
     Route: 042
     Dates: start: 20170106, end: 20170221
  4. VINCRISTINE [Suspect]
     Active Substance: VINCRISTINE
     Indication: Acute lymphocytic leukaemia
     Dosage: 0.8 MG, UNK
     Route: 042
     Dates: start: 20170118, end: 20170302
  5. HYDROCORTISONE [Suspect]
     Active Substance: HYDROCORTISONE
     Indication: Acute lymphocytic leukaemia
     Dosage: 12.5 MG, UNK
     Route: 037
     Dates: start: 20170106, end: 20170203
  6. MERCAPTOPURINE [Suspect]
     Active Substance: MERCAPTOPURINE
     Indication: Acute lymphocytic leukaemia
     Dosage: 32 MG, UNK
     Route: 048
     Dates: start: 20170104, end: 20170222
  7. CYCLOPHOSPHAMIDE [Suspect]
     Active Substance: CYCLOPHOSPHAMIDE
     Indication: Acute lymphocytic leukaemia
     Dosage: 540 MG, UNK
     Route: 042
     Dates: start: 20170104, end: 20170201
  8. PEGASPARGASE [Suspect]
     Active Substance: PEGASPARGASE
     Indication: Acute lymphocytic leukaemia
     Dosage: 680 IU, UNK
     Route: 042
     Dates: start: 20170118, end: 20170223
  9. CIPROFLOXACIN [Concomitant]
     Active Substance: CIPROFLOXACIN
     Indication: Aplasia
     Dosage: UNK
  10. BACTRIM [Concomitant]
     Active Substance: SULFAMETHOXAZOLE\TRIMETHOPRIM
     Indication: Aplasia
     Dosage: UNK
  11. AMBISOME [Concomitant]
     Active Substance: AMPHOTERICIN B
     Indication: Febrile bone marrow aplasia
     Dosage: UNK
  12. PHLOROGLUCINOL\1,3,5-TRIMETHOXYBENZENE [Concomitant]
     Active Substance: PHLOROGLUCINOL\1,3,5-TRIMETHOXYBENZENE
     Indication: Abdominal pain
     Dosage: UNK
  13. AMIKACIN SULFATE [Concomitant]
     Active Substance: AMIKACIN SULFATE
     Indication: Febrile bone marrow aplasia
     Dosage: UNK
  14. PIPERACILLIN SODIUM\TAZOBACTAM SODIUM [Concomitant]
     Active Substance: PIPERACILLIN SODIUM\TAZOBACTAM SODIUM
     Indication: Febrile bone marrow aplasia
     Dosage: UNK
  15. AMOXICILLIN [Concomitant]
     Active Substance: AMOXICILLIN
     Indication: Aplasia
     Dosage: UNK
  16. VENTOLIN [Concomitant]
     Active Substance: ALBUTEROL SULFATE
     Indication: Bronchiolitis
     Dosage: UNK
  17. NALBUPHINE [Concomitant]
     Active Substance: NALBUPHINE
     Indication: Abdominal pain
     Dosage: UNK

REACTIONS (1)
  - Hypofibrinogenaemia [Unknown]

NARRATIVE: CASE EVENT DATE: 20170317
